FAERS Safety Report 6664800-X (Version None)
Quarter: 2010Q1

REPORT INFORMATION
  Report Type: 
  Country: None (occurrence: None)
  Receive Date: 20100330
  Receipt Date: 20100322
  Transmission Date: 20100710
  Serious: Yes (Other)
  Sender: FDA-Public Use
  Company Number: 20108340

PATIENT
  Sex: Female

DRUGS (3)
  1. LIORESAL [Suspect]
     Indication: MUSCLE SPASTICITY
     Dosage: MCG, DAILY, INTRATHECAL
     Route: 037
  2. DILAUDID [Concomitant]
  3. BPIVACAINE [Concomitant]

REACTIONS (4)
  - BLADDER CANCER [None]
  - DEVICE RELATED INFECTION [None]
  - HYPOAESTHESIA [None]
  - STRESS [None]
